FAERS Safety Report 7841938-2 (Version None)
Quarter: 2011Q4

REPORT INFORMATION
  Report Type: 
  Country: None (occurrence: None)
  Receive Date: 20111025
  Receipt Date: 20111014
  Transmission Date: 20120403
  Serious: Yes (Other)
  Sender: FDA-Public Use
  Company Number: BR-BRISTOL-MYERS SQUIBB COMPANY-16185365

PATIENT
  Age: 68 Year
  Sex: Male
  Weight: 74 kg

DRUGS (7)
  1. GALVUS [Concomitant]
  2. GLIMEPIRIDE [Concomitant]
     Dosage: ALSO 4MG
  3. ASPIRIN [Concomitant]
  4. ATENOLOL [Concomitant]
  5. CITALOPRAM HYDROBROMIDE [Concomitant]
  6. SIMVASTATIN [Concomitant]
  7. METFFORMIN HYDROCHLORIDE [Suspect]
     Indication: TYPE 2 DIABETES MELLITUS
     Dosage: RE-INTRODUCE DOSE 500MG AFTER 3 MONTHS.ONG
     Route: 048

REACTIONS (7)
  - DYSPNOEA [None]
  - ANEURYSM [None]
  - BLOOD GLUCOSE INCREASED [None]
  - ANGINA PECTORIS [None]
  - CORONARY ARTERY DISEASE [None]
  - HYPOGLYCAEMIA [None]
  - CARDIAC FAILURE [None]
